FAERS Safety Report 18491263 (Version 1)
Quarter: 2020Q4

REPORT INFORMATION
  Report Type: Spontaneous
  Country: DE (occurrence: DE)
  Receive Date: 20201111
  Receipt Date: 20201111
  Transmission Date: 20210114
  Serious: Yes (Hospitalization)
  Sender: FDA-Public Use
  Company Number: DE-TEVA-2020-DE-1846001

PATIENT
  Age: 85 Year
  Sex: Female

DRUGS (16)
  1. AMITRIPTYLIN [Concomitant]
     Active Substance: AMITRIPTYLINE
     Dosage: 25 MILLIGRAM DAILY;  0-0-1-0
  2. ASS 100 [Suspect]
     Active Substance: ASPIRIN
     Dosage: 100 MILLIGRAM DAILY;  1-0-0-0
  3. DIMENHYDRINAT [Concomitant]
     Active Substance: DIMENHYDRINATE
     Dosage: 50 MG, REQUIREMENT
  4. MOVICOL [Concomitant]
     Active Substance: POLYETHYLENE GLYCOL 3350\POTASSIUM CHLORIDE\SODIUM BICARBONATE\SODIUM CHLORIDE
     Dosage: REQUIREMENT
  5. RAMICLAIR 2,5 MG TABLETTEN [Concomitant]
     Dosage: 2.5 MILLIGRAM DAILY; 1-0-0-0
  6. SIMVASTATIN. [Concomitant]
     Active Substance: SIMVASTATIN
     Dosage: 30 MILLIGRAM DAILY;  0-0-1-0
  7. PREDNISOLON [Suspect]
     Active Substance: PREDNISOLONE
     Dosage: 7.5 MG, DISCONTINUED
  8. MULTILIND HEILSALBE MIT NYSTATIN [Concomitant]
     Dosage: NEED
  9. IBUPROFEN. [Suspect]
     Active Substance: IBUPROFEN
     Dosage: 400 MG, REQUIREMENT
  10. PANTOPRAZOL [Concomitant]
     Active Substance: PANTOPRAZOLE SODIUM
     Dosage: 40 MILLIGRAM DAILY; 1-0-0-0
  11. FOLSAEURE [Concomitant]
     Active Substance: FOLIC ACID
     Dosage: 5 MILLIGRAM DAILY; 1-0-0-0
  12. PALLADON RETARD 4 MG [Concomitant]
     Dosage: 2 DOSAGE FORMS DAILY; 4 MG, 2-0-0-0
  13. METAMIZOL [Concomitant]
     Active Substance: METAMIZOLE SODIUM
     Dosage: 1500 MILLIGRAM DAILY; 1-1-1-0
  14. COLECALCIFEROL [Concomitant]
     Active Substance: CHOLECALCIFEROL
     Dosage: 1000 IU (INTERNATIONAL UNIT) DAILY;  1-0-0-0
  15. EISEN II [Suspect]
     Active Substance: FERROUS SULFATE
     Dosage: 100 MILLIGRAM DAILY; 1-0-0-0
  16. FENTANYL. [Concomitant]
     Active Substance: FENTANYL
     Dosage: 75 UG / H, EVERY 3 DAYS,
     Route: 062

REACTIONS (2)
  - Haematemesis [Unknown]
  - Nausea [Unknown]
